FAERS Safety Report 24997620 (Version 2)
Quarter: 2025Q3

REPORT INFORMATION
  Report Type: Spontaneous
  Country: IN (occurrence: IN)
  Receive Date: 20250222
  Receipt Date: 20250924
  Transmission Date: 20251020
  Serious: Yes (Other)
  Sender: UNICHEM
  Company Number: IN-UNICHEM LABORATORIES LIMITED-UNI-2025-IN-001294

PATIENT

DRUGS (1)
  1. TRAMADOL [Suspect]
     Active Substance: TRAMADOL
     Indication: Product used for unknown indication
     Route: 042

REACTIONS (9)
  - Drug dependence [Unknown]
  - Generalised tonic-clonic seizure [Unknown]
  - Deep vein thrombosis [Unknown]
  - Weight decreased [Unknown]
  - Myalgia [Unknown]
  - Restlessness [Unknown]
  - Sleep disorder [Unknown]
  - Disturbance in attention [Unknown]
  - Anosognosia [Unknown]
